FAERS Safety Report 15530664 (Version 5)
Quarter: 2019Q1

REPORT INFORMATION
  Report Type: Spontaneous
  Country: US (occurrence: US)
  Receive Date: 20181018
  Receipt Date: 20190305
  Transmission Date: 20190417
  Serious: Yes (Death, Hospitalization, Other)
  Sender: FDA-Public Use
  Company Number: US-GILEAD-2018-0368713

PATIENT
  Age: 54 Year
  Sex: Male
  Weight: 101 kg

DRUGS (1)
  1. YESCARTA [Suspect]
     Active Substance: AXICABTAGENE CILOLEUCEL
     Indication: DIFFUSE LARGE B-CELL LYMPHOMA
     Dosage: 68 ML, ONCE
     Route: 042
     Dates: start: 20181002, end: 20181002

REACTIONS (8)
  - Headache [Recovered/Resolved]
  - Sepsis [Unknown]
  - Pneumocystis jirovecii pneumonia [Fatal]
  - Neurotoxicity [Recovering/Resolving]
  - Cytokine release syndrome [Unknown]
  - Diffuse large B-cell lymphoma [Fatal]
  - Chills [Recovered/Resolved]
  - Haemophagocytic lymphohistiocytosis [Fatal]

NARRATIVE: CASE EVENT DATE: 20181006
